FAERS Safety Report 4306891-7 (Version None)
Quarter: 2004Q1

REPORT INFORMATION
  Report Type: 
  Country: None (occurrence: None)
  Receive Date: 20040227
  Receipt Date: 20040217
  Transmission Date: 20041129
  Serious: Yes (Life-Threatening, Hospitalization)
  Sender: FDA-Public Use
  Company Number: GB-GLAXOSMITHKLINE-B0323833A

PATIENT
  Age: 31 Year
  Sex: Female
  Weight: 61 kg

DRUGS (3)
  1. RANITIDINE [Suspect]
     Indication: DYSPEPSIA
     Dosage: 150MG PER DAY
     Route: 048
     Dates: start: 20031001, end: 20031020
  2. XENICAL [Suspect]
     Indication: OBESITY
     Dosage: 120MG PER DAY
     Route: 048
     Dates: start: 20020812, end: 20031001
  3. PROPRANOLOL [Concomitant]
     Indication: MIGRAINE
     Dosage: 160MG PER DAY
     Route: 048
     Dates: start: 20020501, end: 20031001

REACTIONS (2)
  - CHOLELITHIASIS [None]
  - PANCREATITIS [None]
